FAERS Safety Report 5743794-5 (Version None)
Quarter: 2008Q2

REPORT INFORMATION
  Report Type: 
  Country: None (occurrence: None)
  Receive Date: 20080516
  Receipt Date: 20080516
  Transmission Date: 20081010
  Serious: No
  Sender: FDA-Public Use
  Company Number: None

PATIENT
  Age: 57 Year
  Sex: Female

DRUGS (1)
  1. BACTRIM [Suspect]

REACTIONS (8)
  - ARTHRALGIA [None]
  - COUGH [None]
  - HYPERAESTHESIA [None]
  - HYPOAESTHESIA [None]
  - IMPAIRED WORK ABILITY [None]
  - PAIN OF SKIN [None]
  - SUICIDAL IDEATION [None]
  - TENDERNESS [None]
